FAERS Safety Report 8122511-8 (Version None)
Quarter: 2012Q1

REPORT INFORMATION
  Report Type: 
  Country: None (occurrence: None)
  Receive Date: 20120207
  Receipt Date: 20120207
  Transmission Date: 20120608
  Serious: Yes (Hospitalization)
  Sender: FDA-Public Use
  Company Number: None

PATIENT
  Sex: Female
  Weight: 12.5 kg

DRUGS (1)
  1. KINERET [Suspect]
     Indication: PYREXIA
     Dosage: 3.0MG/KG/DAY DAILY SC
     Route: 058

REACTIONS (9)
  - PYREXIA [None]
  - LOBAR PNEUMONIA [None]
  - METAPNEUMOVIRUS INFECTION [None]
  - RASH [None]
  - COUGH [None]
  - DIARRHOEA [None]
  - RESPIRATORY DISORDER [None]
  - DYSPNOEA [None]
  - VOMITING [None]
